FAERS Safety Report 8523059-9 (Version None)
Quarter: 2012Q3

REPORT INFORMATION
  Report Type: 
  Country: None (occurrence: None)
  Receive Date: 20120720
  Receipt Date: 20120710
  Transmission Date: 20120928
  Serious: Yes (Hospitalization)
  Sender: FDA-Public Use
  Company Number: ES-ROCHE-1084472

PATIENT
  Sex: Female
  Weight: 52 kg

DRUGS (7)
  1. PREDNISONE [Concomitant]
     Dosage: TOTAL CYCLE RECIVED:9
     Route: 048
     Dates: start: 20091101, end: 20110201
  2. ETOPOSIDE [Concomitant]
     Dosage: TOTAL CYCLE RECIVED: 3
     Route: 042
     Dates: start: 20101201, end: 20110201
  3. MABTHERA [Suspect]
     Indication: B-CELL LYMPHOMA
     Dosage: LAST DOSE WAS ON APR/2012, TOTAL CYCLE RECIVED: 15
     Route: 042
     Dates: start: 20091101, end: 20120418
  4. CYCLOPHOSPHAMIDE [Concomitant]
     Route: 042
     Dates: start: 20091101, end: 20100201
  5. DOXORUBICIN HYDROCHLORIDE [Concomitant]
     Dosage: TOTAL CYCLES RECIVED: 9
     Route: 042
     Dates: start: 20091101, end: 20110201
  6. VINCRISTINE [Concomitant]
     Dosage: TOTAL CYCLES RECIVED: 6
     Route: 042
  7. CISPLATIN [Concomitant]
     Dosage: TOTAL CYCLE RECIVED:3
     Route: 042
     Dates: start: 20101201

REACTIONS (1)
  - NEUROLOGICAL DECOMPENSATION [None]
